FAERS Safety Report 25341447 (Version 1)
Quarter: 2025Q2

REPORT INFORMATION
  Report Type: Spontaneous
  Country: GB (occurrence: GB)
  Receive Date: 20250521
  Receipt Date: 20250521
  Transmission Date: 20250717
  Serious: Yes (Other)
  Sender: AUROBINDO
  Company Number: GB-AUROBINDO-AUR-APL-2025-025420

PATIENT
  Age: 62 Year
  Sex: Male

DRUGS (2)
  1. MYCOPHENOLATE MOFETIL [Suspect]
     Active Substance: MYCOPHENOLATE MOFETIL
     Indication: Anti-RNA polymerase III antibody positive
     Dosage: 2 GRAM, ONCE A DAY
     Route: 065
  2. METHOTREXATE [Suspect]
     Active Substance: METHOTREXATE
     Indication: Anti-RNA polymerase III antibody positive
     Dosage: 25 MILLIGRAM, EVERY WEEK
     Route: 065

REACTIONS (1)
  - Drug ineffective [Unknown]
